FAERS Safety Report 5466102-6 (Version None)
Quarter: 2007Q3

REPORT INFORMATION
  Report Type: 
  Country: None (occurrence: None)
  Receive Date: 20070924
  Receipt Date: 20070914
  Transmission Date: 20080115
  Serious: Yes (Hospitalization)
  Sender: FDA-Public Use
  Company Number: FR-ABBOTT-07P-056-0417136-00

PATIENT
  Sex: Female

DRUGS (16)
  1. DEPAKENE [Suspect]
     Indication: EPILEPSY
     Route: 048
     Dates: end: 20070701
  2. DEPAKENE [Suspect]
     Dates: end: 20070708
  3. FENOFIBRATE [Suspect]
     Indication: DRUG USE FOR UNKNOWN INDICATION
     Route: 048
  4. MEPROBAMATE [Suspect]
     Indication: DRUG USE FOR UNKNOWN INDICATION
     Route: 048
  5. MEPROBAMATE [Suspect]
  6. MEPROBAMATE [Suspect]
  7. CARBAMAZEPINE [Suspect]
     Indication: EPILEPSY
     Route: 048
     Dates: end: 20070701
  8. CARBAMAZEPINE [Suspect]
     Dates: start: 20070701
  9. REPAGLINIDE [Suspect]
     Indication: DIABETES MELLITUS
     Route: 048
     Dates: end: 20070702
  10. DIOVAN HCT [Suspect]
     Indication: HYPERTENSION
     Route: 048
     Dates: end: 20070802
  11. CICLETANINE [Suspect]
     Indication: HYPERTENSION
     Route: 048
     Dates: end: 20070702
  12. AVANDAMET [Suspect]
     Indication: DRUG USE FOR UNKNOWN INDICATION
     Route: 048
     Dates: end: 20070702
  13. DIAZEPAM [Suspect]
     Indication: DRUG USE FOR UNKNOWN INDICATION
     Route: 048
  14. METFORMIN W/ROSIGLITAZONE [Suspect]
     Indication: DRUG USE FOR UNKNOWN INDICATION
  15. TERBUTALINE SULFATE [Concomitant]
     Indication: RESPIRATORY DISORDER
     Route: 055
  16. IPRATROPIUM BROMIDE [Concomitant]
     Indication: RESPIRATORY DISORDER
     Route: 055

REACTIONS (9)
  - AMMONIA INCREASED [None]
  - ANOREXIA [None]
  - APHASIA [None]
  - BALANCE DISORDER [None]
  - COGNITIVE DISORDER [None]
  - CONFUSIONAL STATE [None]
  - METABOLIC ENCEPHALOPATHY [None]
  - TREMOR [None]
  - VOMITING [None]
